FAERS Safety Report 23211318 (Version 14)
Quarter: 2024Q2

REPORT INFORMATION
  Report Type: Spontaneous
  Country: US (occurrence: US)
  Receive Date: 20231121
  Receipt Date: 20240621
  Transmission Date: 20240716
  Serious: Yes (Hospitalization, Other)
  Sender: FDA-Public Use
  Company Number: US-VERTEX PHARMACEUTICALS-2023-017451

PATIENT
  Age: 36 Year
  Sex: Male
  Weight: 77 kg

DRUGS (4)
  1. TRIKAFTA [Suspect]
     Active Substance: ELEXACAFTOR\IVACAFTOR\TEZACAFTOR
     Indication: Cystic fibrosis
     Dosage: ORANGE PILLS IN AM, BLUE PILLS IN PM (FULL DOSE)
     Route: 048
     Dates: start: 2020
  2. TRIKAFTA [Suspect]
     Active Substance: ELEXACAFTOR\IVACAFTOR\TEZACAFTOR
     Dosage: BLUE PILL IN AM, ORANGE PILL IN PM - EVERY OTHER DAY
     Route: 048
  3. MIRTAZAPINE [Suspect]
     Active Substance: MIRTAZAPINE
     Indication: Depression
     Dosage: UNK
     Route: 065
  4. URSODIOL [Concomitant]
     Active Substance: URSODIOL

REACTIONS (14)
  - Surgery [Unknown]
  - Hospitalisation [Unknown]
  - Cholecystectomy [Recovered/Resolved]
  - Aphasia [Recovering/Resolving]
  - Brain fog [Recovered/Resolved]
  - Hunger [Not Recovered/Not Resolved]
  - Cystic fibrosis related diabetes [Not Recovered/Not Resolved]
  - Pathological doubt [Not Recovered/Not Resolved]
  - Slow speech [Unknown]
  - Blood triglycerides increased [Recovering/Resolving]
  - Glycosylated haemoglobin increased [Recovering/Resolving]
  - Blood chloride increased [Unknown]
  - Memory impairment [Unknown]
  - Depression [Not Recovered/Not Resolved]
